FAERS Safety Report 9580305 (Version 2)
Quarter: 2014Q3

REPORT INFORMATION
  Report Type: Spontaneous
  Country: US (occurrence: None)
  Receive Date: 20130916
  Receipt Date: 20140915
  Transmission Date: 20150326
  Serious: Yes (Other)
  Sender: FDA-Public Use
  Company Number: JPI-P-033051

PATIENT
  Age: 66 Year
  Sex: Male
  Weight: 109.1 kg

DRUGS (19)
  1. BUPROPION HCL [Concomitant]
     Active Substance: BUPROPION HYDROCHLORIDE
  2. EPINEPHRINE (EPINEPHRINE) [Concomitant]
  3. ESOMEPRAZOLE [Concomitant]
     Active Substance: ESOMEPRAZOLE
  4. L-METHYLFOLATE (METINOININE) [Concomitant]
  5. TERAZOSIN HYDROCHLORIDE. [Concomitant]
     Active Substance: TERAZOSIN HYDROCHLORIDE
  6. METRONDIAZOLE (METRONDIAZOLE) [Concomitant]
  7. XYREM [Suspect]
     Active Substance: SODIUM OXYBATE
     Indication: NARCOLEPSY
     Route: 048
     Dates: start: 20120824
  8. HYDROCHLOROTHIAZIDE. [Concomitant]
     Active Substance: HYDROCHLOROTHIAZIDE
  9. ARIPIPRAZOLE [Concomitant]
     Active Substance: ARIPIPRAZOLE
  10. ARMODAFINIL. [Concomitant]
     Active Substance: ARMODAFINIL
  11. SIMVASTATIN. [Concomitant]
     Active Substance: SIMVASTATIN
  12. TERAZOSIN [Concomitant]
     Active Substance: TERAZOSIN\TERAZOSIN HYDROCHLORIDE
  13. LISDEXAMFETAMINE DIMESYLATE [Concomitant]
     Active Substance: LISDEXAMFETAMINE DIMESYLATE
  14. VITAMIN D3 [Concomitant]
     Active Substance: CHOLECALCIFEROL
  15. LISINOPRIL (LISINOPRIL) [Concomitant]
     Active Substance: LISINOPRIL
  16. TIMOLOL MALEATE (TIMOLOL MALEATE) [Concomitant]
     Active Substance: TIMOLOL
  17. PREDNICARBATE (PREDNICARBATE) [Concomitant]
  18. AFLUZOSIN (AFLUZOSIN [Concomitant]
  19. ACYCLCOVIR (ACYCLOVIR) [Concomitant]

REACTIONS (7)
  - Apathy [None]
  - Depression [None]
  - Anxiety [None]
  - Fatigue [None]
  - Condition aggravated [None]
  - Somnolence [None]
  - Blood pressure increased [None]

NARRATIVE: CASE EVENT DATE: 20130611
